FAERS Safety Report 5908918-5 (Version None)
Quarter: 2008Q4

REPORT INFORMATION
  Report Type: 
  Country: None (occurrence: None)
  Receive Date: 20081006
  Receipt Date: 20080923
  Transmission Date: 20090506
  Serious: Yes (Hospitalization)
  Sender: FDA-Public Use
  Company Number: ES-MERCK-0810USA00089

PATIENT
  Sex: Male

DRUGS (2)
  1. HYDRODIURIL [Suspect]
     Route: 048
  2. LITHIUM SULFATE [Suspect]
     Route: 065

REACTIONS (7)
  - ATAXIA [None]
  - DEMENTIA [None]
  - DRUG LEVEL ABOVE THERAPEUTIC [None]
  - DYSARTHRIA [None]
  - DYSPHASIA [None]
  - RESPIRATORY DISORDER [None]
  - THERAPEUTIC AGENT TOXICITY [None]
